FAERS Safety Report 24724863 (Version 1)
Quarter: 2024Q4

REPORT INFORMATION
  Report Type: Spontaneous
  Country: US (occurrence: US)
  Receive Date: 20241212
  Receipt Date: 20241212
  Transmission Date: 20250115
  Serious: No
  Sender: ROCHE
  Company Number: US-ROCHE-10000153693

PATIENT
  Age: 79 Year
  Sex: Female

DRUGS (1)
  1. NUTROPIN AQ NUSPIN 5 [Suspect]
     Active Substance: SOMATROPIN
     Indication: Hypopituitarism
     Route: 058

REACTIONS (1)
  - Illness [Unknown]
